FAERS Safety Report 6250419-1 (Version None)
Quarter: 2009Q2

REPORT INFORMATION
  Report Type: 
  Country: None (occurrence: None)
  Receive Date: 20090630
  Receipt Date: 20090626
  Transmission Date: 20091009
  Serious: Yes (Hospitalization)
  Sender: FDA-Public Use
  Company Number: US-BRISTOL-MYERS SQUIBB COMPANY-14681621

PATIENT
  Age: 61 Year
  Sex: Female
  Weight: 112 kg

DRUGS (15)
  1. ABILIFY [Suspect]
     Indication: BIPOLAR DISORDER
     Dates: start: 20020101
  2. PROZAC [Suspect]
  3. ACTOS [Concomitant]
  4. DIOVAN [Concomitant]
  5. HYDROXYZINE [Concomitant]
  6. METOPROLOL SUCCINATE [Concomitant]
  7. LEVOTHYROXINE SODIUM [Concomitant]
  8. WELLBUTRIN [Concomitant]
  9. AMBIEN [Concomitant]
  10. BENADRYL [Concomitant]
  11. VITAMIN D [Concomitant]
  12. CALCIUM [Concomitant]
  13. MULTI-VITAMIN [Concomitant]
  14. BIOTIN [Concomitant]
  15. OMEPRAZOLE [Concomitant]

REACTIONS (9)
  - CHEST PAIN [None]
  - COUGH [None]
  - DISTURBANCE IN ATTENTION [None]
  - DYSGEUSIA [None]
  - EYE HAEMORRHAGE [None]
  - GASTROOESOPHAGEAL REFLUX DISEASE [None]
  - MEMORY IMPAIRMENT [None]
  - MUSCLE SPASMS [None]
  - TARDIVE DYSKINESIA [None]
